FAERS Safety Report 21745558 (Version 7)
Quarter: 2024Q4

REPORT INFORMATION
  Report Type: Spontaneous
  Country: CA (occurrence: CA)
  Receive Date: 20221219
  Receipt Date: 20241128
  Transmission Date: 20250115
  Serious: Yes (Death, Other)
  Sender: BRISTOL-MYERS SQUIBB COMPANY
  Company Number: CA-BRISTOL-MYERS SQUIBB COMPANY-2022-155037

PATIENT
  Age: 44 Year
  Sex: Female
  Weight: 97 kg

DRUGS (540)
  1. ORENCIA [Suspect]
     Active Substance: ABATACEPT
     Indication: Rheumatoid arthritis
     Route: 042
  2. ORENCIA [Suspect]
     Active Substance: ABATACEPT
     Indication: Psoriatic arthropathy
     Route: 042
  3. ORENCIA [Suspect]
     Active Substance: ABATACEPT
     Route: 042
  4. ORENCIA [Suspect]
     Active Substance: ABATACEPT
     Route: 042
  5. ORENCIA [Suspect]
     Active Substance: ABATACEPT
     Route: 042
  6. ORENCIA [Suspect]
     Active Substance: ABATACEPT
     Indication: Rheumatoid arthritis
     Route: 058
  7. ORENCIA [Suspect]
     Active Substance: ABATACEPT
     Indication: Psoriatic arthropathy
     Route: 058
  8. ORENCIA [Suspect]
     Active Substance: ABATACEPT
     Route: 058
  9. ORENCIA [Suspect]
     Active Substance: ABATACEPT
     Route: 058
  10. ORENCIA [Suspect]
     Active Substance: ABATACEPT
     Route: 058
  11. ORENCIA [Suspect]
     Active Substance: ABATACEPT
     Route: 058
  12. ORENCIA [Suspect]
     Active Substance: ABATACEPT
     Route: 058
  13. ORENCIA [Suspect]
     Active Substance: ABATACEPT
  14. ORENCIA [Suspect]
     Active Substance: ABATACEPT
     Route: 058
  15. TRIAMCINOLONE ACETONIDE [Suspect]
     Active Substance: TRIAMCINOLONE ACETONIDE
     Indication: Rheumatoid arthritis
     Route: 014
  16. TRIAMCINOLONE ACETONIDE [Suspect]
     Active Substance: TRIAMCINOLONE ACETONIDE
     Dosage: SUSPENSION INTRA-ARTICULAR
     Route: 014
  17. TRIAMCINOLONE ACETONIDE [Suspect]
     Active Substance: TRIAMCINOLONE ACETONIDE
  18. ORENCIA [Suspect]
     Active Substance: ABATACEPT
     Indication: Rheumatoid arthritis
  19. ORENCIA [Suspect]
     Active Substance: ABATACEPT
     Indication: Rheumatoid arthritis
     Route: 015
  20. ORENCIA [Suspect]
     Active Substance: ABATACEPT
     Indication: Psoriatic arthropathy
  21. ACETAMINOPHEN [Concomitant]
     Active Substance: ACETAMINOPHEN
     Indication: Pyrexia
  22. ACETAMINOPHEN [Concomitant]
     Active Substance: ACETAMINOPHEN
     Indication: Rheumatoid arthritis
  23. ACETAMINOPHEN [Concomitant]
     Active Substance: ACETAMINOPHEN
     Indication: Pain
     Dosage: EXTENDED RELEASE
     Route: 048
  24. ACETAMINOPHEN\OXYCODONE HYDROCHLORIDE [Concomitant]
     Active Substance: ACETAMINOPHEN\OXYCODONE HYDROCHLORIDE
     Indication: Product used for unknown indication
  25. ACTEMRA [Concomitant]
     Active Substance: TOCILIZUMAB
     Indication: Rheumatoid arthritis
     Route: 048
  26. ACTEMRA [Concomitant]
     Active Substance: TOCILIZUMAB
     Route: 042
  27. ACTEMRA [Concomitant]
     Active Substance: TOCILIZUMAB
  28. ACTEMRA [Concomitant]
     Active Substance: TOCILIZUMAB
     Route: 042
  29. ACTEMRA [Concomitant]
     Active Substance: TOCILIZUMAB
     Route: 042
  30. ACTEMRA [Concomitant]
     Active Substance: TOCILIZUMAB
     Route: 042
  31. ACTEMRA [Concomitant]
     Active Substance: TOCILIZUMAB
     Route: 042
  32. ACTEMRA [Concomitant]
     Active Substance: TOCILIZUMAB
     Route: 058
  33. ACTEMRA [Concomitant]
     Active Substance: TOCILIZUMAB
     Route: 042
  34. ACTEMRA [Concomitant]
     Active Substance: TOCILIZUMAB
     Route: 042
  35. ACTEMRA [Concomitant]
     Active Substance: TOCILIZUMAB
     Route: 042
  36. ACTEMRA [Concomitant]
     Active Substance: TOCILIZUMAB
     Route: 042
  37. ACTEMRA [Concomitant]
     Active Substance: TOCILIZUMAB
  38. ADALIMUMAB [Concomitant]
     Active Substance: ADALIMUMAB
     Indication: Rheumatoid arthritis
     Route: 058
  39. ADALIMUMAB [Concomitant]
     Active Substance: ADALIMUMAB
     Indication: Psoriatic arthropathy
     Route: 058
  40. ADALIMUMAB [Concomitant]
     Active Substance: ADALIMUMAB
     Route: 047
  41. ADALIMUMAB [Concomitant]
     Active Substance: ADALIMUMAB
     Route: 042
  42. ADALIMUMAB [Concomitant]
     Active Substance: ADALIMUMAB
     Route: 048
  43. ACETAMINOPHEN [Concomitant]
     Active Substance: ACETAMINOPHEN
     Indication: Product used for unknown indication
  44. ARAVA [Concomitant]
     Active Substance: LEFLUNOMIDE
     Indication: Rheumatoid arthritis
     Route: 048
  45. ARAVA [Concomitant]
     Active Substance: LEFLUNOMIDE
     Route: 048
  46. ARAVA [Concomitant]
     Active Substance: LEFLUNOMIDE
     Route: 048
  47. ARAVA [Concomitant]
     Active Substance: LEFLUNOMIDE
  48. ARAVA [Concomitant]
     Active Substance: LEFLUNOMIDE
     Route: 019
  49. ARAVA [Concomitant]
     Active Substance: LEFLUNOMIDE
     Route: 005
  50. CALCIUM CARBONATE [Concomitant]
     Active Substance: CALCIUM CARBONATE
     Indication: Product used for unknown indication
  51. CETIRIZINE HYDROCHLORIDE [Concomitant]
     Active Substance: CETIRIZINE HYDROCHLORIDE
     Indication: Rheumatoid arthritis
     Route: 048
  52. CETIRIZINE HYDROCHLORIDE [Concomitant]
     Active Substance: CETIRIZINE HYDROCHLORIDE
     Route: 048
  53. CETIRIZINE HYDROCHLORIDE [Concomitant]
     Active Substance: CETIRIZINE HYDROCHLORIDE
  54. CETIRIZINE HYDROCHLORIDE [Concomitant]
     Active Substance: CETIRIZINE HYDROCHLORIDE
  55. CETIRIZINE HYDROCHLORIDE [Concomitant]
     Active Substance: CETIRIZINE HYDROCHLORIDE
     Route: 048
  56. CETIRIZINE HYDROCHLORIDE [Concomitant]
     Active Substance: CETIRIZINE HYDROCHLORIDE
     Route: 048
  57. CETIRIZINE HYDROCHLORIDE [Concomitant]
     Active Substance: CETIRIZINE HYDROCHLORIDE
  58. CETIRIZINE HYDROCHLORIDE [Concomitant]
     Active Substance: CETIRIZINE HYDROCHLORIDE
  59. CETIRIZINE HYDROCHLORIDE [Concomitant]
     Active Substance: CETIRIZINE HYDROCHLORIDE
     Route: 048
  60. CETIRIZINE HYDROCHLORIDE [Concomitant]
     Active Substance: CETIRIZINE HYDROCHLORIDE
  61. CHLORHEXIDINE [Concomitant]
     Active Substance: CHLORHEXIDINE
     Indication: Product used for unknown indication
     Route: 061
  62. CHLORHEXIDINE [Concomitant]
     Active Substance: CHLORHEXIDINE
     Route: 048
  63. CHLORHEXIDINE [Concomitant]
     Active Substance: CHLORHEXIDINE
  64. CHLORHEXIDINE GLUCONATE [Concomitant]
     Active Substance: CHLORHEXIDINE GLUCONATE
     Indication: Product used for unknown indication
  65. CHLORHEXIDINE GLUCONATE [Concomitant]
     Active Substance: CHLORHEXIDINE GLUCONATE
     Route: 048
  66. CHLORHEXIDINE GLUCONATE [Concomitant]
     Active Substance: CHLORHEXIDINE GLUCONATE
     Route: 061
  67. CIMZIA [Concomitant]
     Active Substance: CERTOLIZUMAB PEGOL
     Indication: Rheumatoid arthritis
     Route: 058
  68. CIMZIA [Concomitant]
     Active Substance: CERTOLIZUMAB PEGOL
     Indication: Psoriatic arthropathy
     Route: 058
  69. CIMZIA [Concomitant]
     Active Substance: CERTOLIZUMAB PEGOL
     Indication: Psoriasis
     Route: 005
  70. CIMZIA [Concomitant]
     Active Substance: CERTOLIZUMAB PEGOL
     Route: 058
  71. CIMZIA [Concomitant]
     Active Substance: CERTOLIZUMAB PEGOL
     Route: 058
  72. CIMZIA [Concomitant]
     Active Substance: CERTOLIZUMAB PEGOL
     Route: 042
  73. CIMZIA [Concomitant]
     Active Substance: CERTOLIZUMAB PEGOL
     Route: 058
  74. CIMZIA [Concomitant]
     Active Substance: CERTOLIZUMAB PEGOL
  75. CORTISONE (HYDROCORTISONE) [Concomitant]
     Active Substance: HYDROCORTISONE
     Indication: Rheumatoid arthritis
     Route: 048
  76. CORTISONE (HYDROCORTISONE) [Concomitant]
     Active Substance: HYDROCORTISONE
     Route: 003
  77. CORTISONE (HYDROCORTISONE) [Concomitant]
     Active Substance: HYDROCORTISONE
     Route: 050
  78. CORTISONE (HYDROCORTISONE) [Concomitant]
     Active Substance: HYDROCORTISONE
     Route: 058
  79. CORTISONE (HYDROCORTISONE) [Concomitant]
     Active Substance: HYDROCORTISONE
     Route: 058
  80. CORTISONE (HYDROCORTISONE) [Concomitant]
     Active Substance: HYDROCORTISONE
     Route: 048
  81. CORTISONE (HYDROCORTISONE) [Concomitant]
     Active Substance: HYDROCORTISONE
     Route: 058
  82. CORTISONE (HYDROCORTISONE) [Concomitant]
     Active Substance: HYDROCORTISONE
     Route: 061
  83. CORTISONE (HYDROCORTISONE) [Concomitant]
     Active Substance: HYDROCORTISONE
     Route: 058
  84. TOPICORT [Concomitant]
     Active Substance: DESOXIMETASONE
     Indication: Rheumatoid arthritis
     Route: 061
  85. TOPICORT [Concomitant]
     Active Substance: DESOXIMETASONE
     Route: 048
  86. TOPICORT [Concomitant]
     Active Substance: DESOXIMETASONE
     Route: 061
  87. TOPICORT [Concomitant]
     Active Substance: DESOXIMETASONE
     Route: 058
  88. TOPICORT [Concomitant]
     Active Substance: DESOXIMETASONE
     Route: 003
  89. TOPICORT [Concomitant]
     Active Substance: DESOXIMETASONE
     Route: 050
  90. TOPICORT [Concomitant]
     Active Substance: DESOXIMETASONE
     Route: 048
  91. TOPICORT [Concomitant]
     Active Substance: DESOXIMETASONE
     Route: 016
  92. TOPICORT [Concomitant]
     Active Substance: DESOXIMETASONE
     Route: 003
  93. TOPICORT [Concomitant]
     Active Substance: DESOXIMETASONE
     Route: 048
  94. TOPICORT [Concomitant]
     Active Substance: DESOXIMETASONE
     Route: 048
  95. TOPICORT [Concomitant]
     Active Substance: DESOXIMETASONE
     Route: 048
  96. TOPICORT [Concomitant]
     Active Substance: DESOXIMETASONE
  97. TOPICORT [Concomitant]
     Active Substance: DESOXIMETASONE
  98. TOPICORT [Concomitant]
     Active Substance: DESOXIMETASONE
     Route: 042
  99. DICLOFENAC [Concomitant]
     Active Substance: DICLOFENAC
     Indication: Product used for unknown indication
     Route: 048
  100. DICLOFENAC [Concomitant]
     Active Substance: DICLOFENAC
     Route: 047
  101. DICLOFENAC [Concomitant]
     Active Substance: DICLOFENAC
     Route: 048
  102. DICLOFENAC [Concomitant]
     Active Substance: DICLOFENAC
     Route: 048
  103. ENBREL [Concomitant]
     Active Substance: ETANERCEPT
     Indication: Rheumatoid arthritis
  104. ENBREL [Concomitant]
     Active Substance: ETANERCEPT
     Indication: Psoriatic arthropathy
  105. ENBREL [Concomitant]
     Active Substance: ETANERCEPT
     Route: 058
  106. ENBREL [Concomitant]
     Active Substance: ETANERCEPT
     Route: 058
  107. ENBREL [Concomitant]
     Active Substance: ETANERCEPT
     Route: 058
  108. ENBREL [Concomitant]
     Active Substance: ETANERCEPT
     Route: 061
  109. ENBREL [Concomitant]
     Active Substance: ETANERCEPT
  110. ENBREL [Concomitant]
     Active Substance: ETANERCEPT
     Route: 058
  111. ENBREL [Concomitant]
     Active Substance: ETANERCEPT
     Route: 058
  112. ENBREL [Concomitant]
     Active Substance: ETANERCEPT
     Route: 058
  113. ENBREL [Concomitant]
     Active Substance: ETANERCEPT
     Route: 048
  114. ENBREL [Concomitant]
     Active Substance: ETANERCEPT
     Route: 058
  115. ENBREL [Concomitant]
     Active Substance: ETANERCEPT
  116. FOLIC ACID [Concomitant]
     Active Substance: FOLIC ACID
     Indication: Rheumatoid arthritis
     Route: 048
  117. FOLIC ACID [Concomitant]
     Active Substance: FOLIC ACID
  118. FOLIC ACID [Concomitant]
     Active Substance: FOLIC ACID
  119. FOLIC ACID [Concomitant]
     Active Substance: FOLIC ACID
  120. FOLIC ACID [Concomitant]
     Active Substance: FOLIC ACID
     Route: 048
  121. FOLIC ACID [Concomitant]
     Active Substance: FOLIC ACID
  122. FOLIC ACID [Concomitant]
     Active Substance: FOLIC ACID
     Route: 048
  123. FOLIC ACID [Concomitant]
     Active Substance: FOLIC ACID
  124. FOLIC ACID [Concomitant]
     Active Substance: FOLIC ACID
     Route: 058
  125. FOLIC ACID [Concomitant]
     Active Substance: FOLIC ACID
  126. FOLIC ACID [Concomitant]
     Active Substance: FOLIC ACID
  127. FOLIC ACID [Concomitant]
     Active Substance: FOLIC ACID
  128. FOLIC ACID [Concomitant]
     Active Substance: FOLIC ACID
     Route: 016
  129. FOLIC ACID [Concomitant]
     Active Substance: FOLIC ACID
  130. FOLIC ACID [Concomitant]
     Active Substance: FOLIC ACID
  131. FOLIC ACID [Concomitant]
     Active Substance: FOLIC ACID
  132. FOLIC ACID [Concomitant]
     Active Substance: FOLIC ACID
  133. FOLIC ACID [Concomitant]
     Active Substance: FOLIC ACID
  134. FOSAMAX [Concomitant]
     Active Substance: ALENDRONATE SODIUM
     Indication: Rheumatoid arthritis
     Route: 048
  135. FOSAMAX [Concomitant]
     Active Substance: ALENDRONATE SODIUM
  136. FOSAMAX [Concomitant]
     Active Substance: ALENDRONATE SODIUM
  137. HUMIRA [Concomitant]
     Active Substance: ADALIMUMAB
     Indication: Rheumatoid arthritis
     Route: 058
  138. HUMIRA [Concomitant]
     Active Substance: ADALIMUMAB
     Indication: Psoriatic arthropathy
     Route: 058
  139. HUMIRA [Concomitant]
     Active Substance: ADALIMUMAB
  140. HUMIRA [Concomitant]
     Active Substance: ADALIMUMAB
     Route: 058
  141. HUMIRA [Concomitant]
     Active Substance: ADALIMUMAB
     Route: 058
  142. HUMIRA [Concomitant]
     Active Substance: ADALIMUMAB
     Route: 057
  143. HYDROXYCHLOROQUINE [Concomitant]
     Active Substance: HYDROXYCHLOROQUINE
     Indication: Rheumatoid arthritis
     Route: 048
  144. HYDROXYCHLOROQUINE [Concomitant]
     Active Substance: HYDROXYCHLOROQUINE
     Indication: Systemic lupus erythematosus
     Route: 005
  145. HYDROXYCHLOROQUINE [Concomitant]
     Active Substance: HYDROXYCHLOROQUINE
  146. HYDROXYCHLOROQUINE [Concomitant]
     Active Substance: HYDROXYCHLOROQUINE
  147. HYDROXYCHLOROQUINE [Concomitant]
     Active Substance: HYDROXYCHLOROQUINE
     Route: 048
  148. HYDROXYCHLOROQUINE [Concomitant]
     Active Substance: HYDROXYCHLOROQUINE
     Route: 048
  149. HYDROXYCHLOROQUINE [Concomitant]
     Active Substance: HYDROXYCHLOROQUINE
  150. HYDROXYCHLOROQUINE [Concomitant]
     Active Substance: HYDROXYCHLOROQUINE
  151. INFLIXIMAB [Concomitant]
     Active Substance: INFLIXIMAB
     Indication: Rheumatoid arthritis
  152. INFLIXIMAB [Concomitant]
     Active Substance: INFLIXIMAB
     Indication: Psoriatic arthropathy
     Route: 042
  153. INFLIXIMAB [Concomitant]
     Active Substance: INFLIXIMAB
     Route: 042
  154. INFLIXIMAB [Concomitant]
     Active Substance: INFLIXIMAB
  155. INFLIXIMAB [Concomitant]
     Active Substance: INFLIXIMAB
     Route: 042
  156. LEFLUNOMIDE [Concomitant]
     Active Substance: LEFLUNOMIDE
     Indication: Rheumatoid arthritis
     Route: 048
  157. LEFLUNOMIDE [Concomitant]
     Active Substance: LEFLUNOMIDE
     Route: 048
  158. LEFLUNOMIDE [Concomitant]
     Active Substance: LEFLUNOMIDE
     Route: 048
  159. LEFLUNOMIDE [Concomitant]
     Active Substance: LEFLUNOMIDE
     Route: 048
  160. LEFLUNOMIDE [Concomitant]
     Active Substance: LEFLUNOMIDE
  161. LEFLUNOMIDE [Concomitant]
     Active Substance: LEFLUNOMIDE
  162. LEFLUNOMIDE [Concomitant]
     Active Substance: LEFLUNOMIDE
  163. METHOTREXATE [Concomitant]
     Active Substance: METHOTREXATE
     Indication: Rheumatoid arthritis
  164. METHOTREXATE [Concomitant]
     Active Substance: METHOTREXATE
     Route: 048
  165. METHOTREXATE [Concomitant]
     Active Substance: METHOTREXATE
     Route: 048
  166. METHOTREXATE [Concomitant]
     Active Substance: METHOTREXATE
     Route: 037
  167. METHOTREXATE [Concomitant]
     Active Substance: METHOTREXATE
     Route: 058
  168. METHOTREXATE [Concomitant]
     Active Substance: METHOTREXATE
     Route: 058
  169. METHOTREXATE [Concomitant]
     Active Substance: METHOTREXATE
     Route: 048
  170. METHOTREXATE [Concomitant]
     Active Substance: METHOTREXATE
  171. METHOTREXATE [Concomitant]
     Active Substance: METHOTREXATE
  172. METHOTREXATE [Concomitant]
     Active Substance: METHOTREXATE
     Route: 048
  173. METHOTREXATE [Concomitant]
     Active Substance: METHOTREXATE
     Route: 048
  174. METHOTREXATE [Concomitant]
     Active Substance: METHOTREXATE
     Route: 048
  175. METHOTREXATE [Concomitant]
     Active Substance: METHOTREXATE
     Route: 048
  176. METHOTREXATE [Concomitant]
     Active Substance: METHOTREXATE
     Route: 048
  177. METHOTREXATE [Concomitant]
     Active Substance: METHOTREXATE
     Route: 048
  178. METHOTREXATE [Concomitant]
     Active Substance: METHOTREXATE
     Route: 048
  179. METHOTREXATE [Concomitant]
     Active Substance: METHOTREXATE
     Route: 058
  180. METHOTREXATE [Concomitant]
     Active Substance: METHOTREXATE
     Route: 048
  181. METHOTREXATE [Concomitant]
     Active Substance: METHOTREXATE
     Route: 013
  182. METHOTREXATE [Concomitant]
     Active Substance: METHOTREXATE
     Route: 048
  183. METHOTREXATE [Concomitant]
     Active Substance: METHOTREXATE
     Route: 048
  184. METHOTREXATE [Concomitant]
     Active Substance: METHOTREXATE
     Route: 048
  185. METHOTREXATE [Concomitant]
     Active Substance: METHOTREXATE
     Route: 058
  186. METHOTREXATE [Concomitant]
     Active Substance: METHOTREXATE
     Route: 042
  187. METHOTREXATE [Concomitant]
     Active Substance: METHOTREXATE
     Route: 013
  188. METHOTREXATE [Concomitant]
     Active Substance: METHOTREXATE
  189. METHOTREXATE [Concomitant]
     Active Substance: METHOTREXATE
  190. METHOTREXATE [Concomitant]
     Active Substance: METHOTREXATE
     Route: 048
  191. METHOTREXATE [Concomitant]
     Active Substance: METHOTREXATE
     Route: 048
  192. METHOTREXATE [Concomitant]
     Active Substance: METHOTREXATE
     Route: 048
  193. METHOTREXATE [Concomitant]
     Active Substance: METHOTREXATE
     Route: 048
  194. METHOTREXATE [Concomitant]
     Active Substance: METHOTREXATE
     Route: 048
  195. METHOTREXATE [Concomitant]
     Active Substance: METHOTREXATE
     Route: 013
  196. METHOTREXATE [Concomitant]
     Active Substance: METHOTREXATE
     Route: 048
  197. METHOTREXATE [Concomitant]
     Active Substance: METHOTREXATE
     Route: 058
  198. METHOTREXATE [Concomitant]
     Active Substance: METHOTREXATE
     Route: 058
  199. METHOTREXATE [Concomitant]
     Active Substance: METHOTREXATE
     Route: 058
  200. METHOTREXATE [Concomitant]
     Active Substance: METHOTREXATE
     Route: 048
  201. METHOTREXATE [Concomitant]
     Active Substance: METHOTREXATE
     Route: 013
  202. METHOTREXATE [Concomitant]
     Active Substance: METHOTREXATE
     Route: 042
  203. METHOTREXATE [Concomitant]
     Active Substance: METHOTREXATE
     Route: 058
  204. METHOTREXATE [Concomitant]
     Active Substance: METHOTREXATE
     Route: 058
  205. METHOTREXATE [Concomitant]
     Active Substance: METHOTREXATE
     Route: 013
  206. METHOTREXATE [Concomitant]
     Active Substance: METHOTREXATE
     Route: 058
  207. METHOTREXATE [Concomitant]
     Active Substance: METHOTREXATE
     Route: 013
  208. METHOTREXATE [Concomitant]
     Active Substance: METHOTREXATE
     Route: 013
  209. METHOTREXATE [Concomitant]
     Active Substance: METHOTREXATE
     Route: 013
  210. METHOTREXATE [Concomitant]
     Active Substance: METHOTREXATE
     Route: 048
  211. METHOTREXATE [Concomitant]
     Active Substance: METHOTREXATE
     Route: 048
  212. METHOTREXATE [Concomitant]
     Active Substance: METHOTREXATE
     Route: 048
  213. METHOTREXATE [Concomitant]
     Active Substance: METHOTREXATE
     Route: 048
  214. METHOTREXATE [Concomitant]
     Active Substance: METHOTREXATE
     Route: 048
  215. METHOTREXATE [Concomitant]
     Active Substance: METHOTREXATE
     Route: 048
  216. METHOTREXATE [Concomitant]
     Active Substance: METHOTREXATE
     Route: 048
  217. METHOTREXATE [Concomitant]
     Active Substance: METHOTREXATE
     Route: 048
  218. METHOTREXATE [Concomitant]
     Active Substance: METHOTREXATE
     Route: 048
  219. METHOTREXATE [Concomitant]
     Active Substance: METHOTREXATE
     Route: 048
  220. METHOTREXATE [Concomitant]
     Active Substance: METHOTREXATE
     Route: 048
  221. METHOTREXATE [Concomitant]
     Active Substance: METHOTREXATE
     Route: 048
  222. METHOTREXATE [Concomitant]
     Active Substance: METHOTREXATE
     Route: 048
  223. METHOTREXATE [Concomitant]
     Active Substance: METHOTREXATE
     Route: 048
  224. METHOTREXATE [Concomitant]
     Active Substance: METHOTREXATE
     Route: 048
  225. METHOTREXATE [Concomitant]
     Active Substance: METHOTREXATE
     Route: 048
  226. METHOTREXATE [Concomitant]
     Active Substance: METHOTREXATE
     Route: 058
  227. OXYCODONE [Concomitant]
     Active Substance: OXYCODONE
     Indication: Product used for unknown indication
  228. OXYCODONE [Concomitant]
     Active Substance: OXYCODONE
  229. OXYCODONE [Concomitant]
     Active Substance: OXYCODONE
     Route: 042
  230. OXYCODONE HYDROCHLORIDE [Concomitant]
     Active Substance: OXYCODONE HYDROCHLORIDE
     Indication: Product used for unknown indication
  231. OXYCODONE TEREPHTHALATE [Concomitant]
     Active Substance: OXYCODONE TEREPHTHALATE
     Indication: Product used for unknown indication
  232. PERIOGARD [Concomitant]
     Active Substance: CHLORHEXIDINE GLUCONATE
     Indication: Product used for unknown indication
     Route: 002
  233. PERIOGARD [Concomitant]
     Active Substance: CHLORHEXIDINE GLUCONATE
     Route: 048
  234. PERIOGARD [Concomitant]
     Active Substance: CHLORHEXIDINE GLUCONATE
     Route: 016
  235. PSEUDOEPHEDRINE [Concomitant]
     Active Substance: PSEUDOEPHEDRINE
     Indication: Product used for unknown indication
  236. PSEUDOEPHEDRINE [Concomitant]
     Active Substance: PSEUDOEPHEDRINE
     Route: 002
  237. CETIRIZINE HYDROCHLORIDE\PSEUDOEPHEDRINE HYDROCHLORIDE [Concomitant]
     Active Substance: CETIRIZINE HYDROCHLORIDE\PSEUDOEPHEDRINE HYDROCHLORIDE
     Indication: Rheumatoid arthritis
  238. REMICADE [Concomitant]
     Active Substance: INFLIXIMAB
     Indication: Rheumatoid arthritis
     Route: 042
  239. REMICADE [Concomitant]
     Active Substance: INFLIXIMAB
     Route: 058
  240. REMICADE [Concomitant]
     Active Substance: INFLIXIMAB
     Route: 042
  241. REMICADE [Concomitant]
     Active Substance: INFLIXIMAB
     Route: 042
  242. RITUXIMAB [Concomitant]
     Active Substance: RITUXIMAB
     Indication: Rheumatoid arthritis
     Route: 058
  243. RITUXIMAB [Concomitant]
     Active Substance: RITUXIMAB
     Route: 042
  244. RITUXIMAB [Concomitant]
     Active Substance: RITUXIMAB
     Route: 016
  245. RITUXIMAB [Concomitant]
     Active Substance: RITUXIMAB
     Route: 041
  246. RITUXIMAB [Concomitant]
     Active Substance: RITUXIMAB
     Route: 042
  247. RITUXIMAB [Concomitant]
     Active Substance: RITUXIMAB
     Route: 042
  248. RITUXIMAB [Concomitant]
     Active Substance: RITUXIMAB
     Route: 058
  249. RITUXIMAB [Concomitant]
     Active Substance: RITUXIMAB
  250. RITUXIMAB [Concomitant]
     Active Substance: RITUXIMAB
     Route: 041
  251. SIMPONI [Concomitant]
     Active Substance: GOLIMUMAB
     Indication: Rheumatoid arthritis
     Route: 058
  252. SIMPONI [Concomitant]
     Active Substance: GOLIMUMAB
     Indication: Psoriatic arthropathy
     Route: 052
  253. SIMPONI [Concomitant]
     Active Substance: GOLIMUMAB
     Route: 042
  254. SIMPONI [Concomitant]
     Active Substance: GOLIMUMAB
     Route: 052
  255. SIMPONI [Concomitant]
     Active Substance: GOLIMUMAB
     Route: 058
  256. SIMPONI [Concomitant]
     Active Substance: GOLIMUMAB
     Route: 058
  257. SIMPONI [Concomitant]
     Active Substance: GOLIMUMAB
  258. SULFAMETHOXAZOLE [Concomitant]
     Active Substance: SULFAMETHOXAZOLE
     Indication: Product used for unknown indication
     Route: 042
  259. SULFAMETHOXAZOLE\TRIMETHOPRIM [Concomitant]
     Active Substance: SULFAMETHOXAZOLE\TRIMETHOPRIM
     Indication: Product used for unknown indication
  260. SULFAMETHOXAZOLE\TRIMETHOPRIM [Concomitant]
     Active Substance: SULFAMETHOXAZOLE\TRIMETHOPRIM
     Route: 067
  261. SULFASALAZINE [Concomitant]
     Active Substance: SULFASALAZINE
     Indication: Rheumatoid arthritis
     Route: 058
  262. SULFASALAZINE [Concomitant]
     Active Substance: SULFASALAZINE
     Route: 048
  263. SULFASALAZINE [Concomitant]
     Active Substance: SULFASALAZINE
     Route: 048
  264. SULFASALAZINE [Concomitant]
     Active Substance: SULFASALAZINE
  265. SULFASALAZINE [Concomitant]
     Active Substance: SULFASALAZINE
  266. SULFASALAZINE [Concomitant]
     Active Substance: SULFASALAZINE
     Route: 048
  267. SULFASALAZINE [Concomitant]
     Active Substance: SULFASALAZINE
     Route: 048
  268. SULFASALAZINE [Concomitant]
     Active Substance: SULFASALAZINE
     Route: 048
  269. SULFASALAZINE [Concomitant]
     Active Substance: SULFASALAZINE
     Route: 048
  270. SULFASALAZINE [Concomitant]
     Active Substance: SULFASALAZINE
     Route: 058
  271. SULFASALAZINE [Concomitant]
     Active Substance: SULFASALAZINE
     Route: 058
  272. SULFASALAZINE [Concomitant]
     Active Substance: SULFASALAZINE
  273. SULFASALAZINE [Concomitant]
     Active Substance: SULFASALAZINE
  274. SULFASALAZINE [Concomitant]
     Active Substance: SULFASALAZINE
  275. SULFASALAZINE [Concomitant]
     Active Substance: SULFASALAZINE
     Route: 048
  276. SULFASALAZINE [Concomitant]
     Active Substance: SULFASALAZINE
     Route: 048
  277. SULFASALAZINE [Concomitant]
     Active Substance: SULFASALAZINE
  278. SULFASALAZINE [Concomitant]
     Active Substance: SULFASALAZINE
     Route: 048
  279. SULFASALAZINE [Concomitant]
     Active Substance: SULFASALAZINE
     Route: 048
  280. SULFASALAZINE [Concomitant]
     Active Substance: SULFASALAZINE
  281. SULFASALAZINE [Concomitant]
     Active Substance: SULFASALAZINE
     Route: 048
  282. SULFASALAZINE [Concomitant]
     Active Substance: SULFASALAZINE
     Route: 048
  283. SULFASALAZINE [Concomitant]
     Active Substance: SULFASALAZINE
     Route: 048
  284. SULFASALAZINE [Concomitant]
     Active Substance: SULFASALAZINE
     Route: 048
  285. SULFASALAZINE [Concomitant]
     Active Substance: SULFASALAZINE
     Route: 048
  286. TOFACITINIB CITRATE [Concomitant]
     Active Substance: TOFACITINIB CITRATE
     Indication: Rheumatoid arthritis
  287. TOFACITINIB CITRATE [Concomitant]
     Active Substance: TOFACITINIB CITRATE
  288. TOFACITINIB CITRATE [Concomitant]
     Active Substance: TOFACITINIB CITRATE
  289. TOFACITINIB CITRATE [Concomitant]
     Active Substance: TOFACITINIB CITRATE
  290. TOFACITINIB CITRATE [Concomitant]
     Active Substance: TOFACITINIB CITRATE
  291. TOFACITINIB [Concomitant]
     Active Substance: TOFACITINIB
     Indication: Product used for unknown indication
  292. TYLENOL [Concomitant]
     Active Substance: ACETAMINOPHEN
     Indication: Product used for unknown indication
     Route: 042
  293. TYLENOL [Concomitant]
     Active Substance: ACETAMINOPHEN
     Route: 058
  294. XELJANZ [Concomitant]
     Active Substance: TOFACITINIB CITRATE
     Indication: Rheumatoid arthritis
     Route: 050
  295. XELJANZ [Concomitant]
     Active Substance: TOFACITINIB CITRATE
  296. XELJANZ [Concomitant]
     Active Substance: TOFACITINIB CITRATE
  297. XELJANZ [Concomitant]
     Active Substance: TOFACITINIB CITRATE
     Dosage: CYCLICAL
     Route: 048
  298. XELJANZ [Concomitant]
     Active Substance: TOFACITINIB CITRATE
  299. XELJANZ [Concomitant]
     Active Substance: TOFACITINIB CITRATE
     Route: 048
  300. XELJANZ [Concomitant]
     Active Substance: TOFACITINIB CITRATE
     Route: 048
  301. XELJANZ [Concomitant]
     Active Substance: TOFACITINIB CITRATE
  302. PREDNISONE [Concomitant]
     Active Substance: PREDNISONE
     Indication: Rheumatoid arthritis
  303. PREDNISONE [Concomitant]
     Active Substance: PREDNISONE
     Indication: Systemic lupus erythematosus
     Route: 042
  304. PREDNISONE [Concomitant]
     Active Substance: PREDNISONE
     Indication: Synovitis
     Route: 048
  305. PREDNISONE [Concomitant]
     Active Substance: PREDNISONE
     Indication: Psoriatic arthropathy
     Route: 048
  306. PREDNISONE [Concomitant]
     Active Substance: PREDNISONE
     Indication: Pemphigus
  307. PREDNISONE [Concomitant]
     Active Substance: PREDNISONE
     Indication: Condition aggravated
     Route: 048
  308. PREDNISONE [Concomitant]
     Active Substance: PREDNISONE
     Route: 048
  309. PREDNISONE [Concomitant]
     Active Substance: PREDNISONE
  310. PREDNISONE [Concomitant]
     Active Substance: PREDNISONE
     Route: 048
  311. PREDNISONE [Concomitant]
     Active Substance: PREDNISONE
     Route: 048
  312. PREDNISONE [Concomitant]
     Active Substance: PREDNISONE
  313. PREDNISONE [Concomitant]
     Active Substance: PREDNISONE
     Route: 042
  314. PREDNISONE [Concomitant]
     Active Substance: PREDNISONE
     Route: 048
  315. PREDNISONE [Concomitant]
     Active Substance: PREDNISONE
     Route: 048
  316. PANTOPRAZOLE SODIUM [Concomitant]
     Active Substance: PANTOPRAZOLE SODIUM
     Indication: Product used for unknown indication
     Route: 016
  317. PANTOPRAZOLE SODIUM [Concomitant]
     Active Substance: PANTOPRAZOLE SODIUM
  318. METHYLPREDNISOLONE SODIUM SUCCINATE [Concomitant]
     Active Substance: METHYLPREDNISOLONE SODIUM SUCCINATE
     Indication: Rheumatoid arthritis
  319. METHYLPREDNISOLONE SODIUM SUCCINATE [Concomitant]
     Active Substance: METHYLPREDNISOLONE SODIUM SUCCINATE
     Route: 014
  320. HYDROCORTISONE SODIUM SUCCINATE [Concomitant]
     Active Substance: HYDROCORTISONE SODIUM SUCCINATE
     Indication: Rheumatoid arthritis
     Route: 058
  321. HYDROCORTISONE SODIUM SUCCINATE [Concomitant]
     Active Substance: HYDROCORTISONE SODIUM SUCCINATE
  322. HYDROCORTISONE [Concomitant]
     Active Substance: HYDROCORTISONE
     Indication: Rheumatoid arthritis
     Route: 048
  323. HYDROCORTISONE [Concomitant]
     Active Substance: HYDROCORTISONE
     Route: 058
  324. HYDROCORTISONE [Concomitant]
     Active Substance: HYDROCORTISONE
  325. HYDROCORTISONE [Concomitant]
     Active Substance: HYDROCORTISONE
     Route: 058
  326. HYDROCORTISONE [Concomitant]
     Active Substance: HYDROCORTISONE
  327. DOXYCYCLINE HYCLATE [Concomitant]
     Active Substance: DOXYCYCLINE HYCLATE
     Indication: Product used for unknown indication
  328. DEPO-MEDROL [Concomitant]
     Active Substance: METHYLPREDNISOLONE ACETATE
     Indication: Product used for unknown indication
     Route: 013
  329. DEPO-MEDROL [Concomitant]
     Active Substance: METHYLPREDNISOLONE ACETATE
  330. DEPO-MEDROL [Concomitant]
     Active Substance: METHYLPREDNISOLONE ACETATE
     Route: 014
  331. CHLORAPREP ONE-STEP [Concomitant]
     Active Substance: CHLORHEXIDINE GLUCONATE\ISOPROPYL ALCOHOL
     Indication: Rheumatoid arthritis
     Route: 061
  332. CHLORAPREP ONE-STEP [Concomitant]
     Active Substance: CHLORHEXIDINE GLUCONATE\ISOPROPYL ALCOHOL
     Route: 061
  333. CHLORAPREP ONE-STEP [Concomitant]
     Active Substance: CHLORHEXIDINE GLUCONATE\ISOPROPYL ALCOHOL
  334. APREPITANT [Concomitant]
     Active Substance: APREPITANT
     Indication: Product used for unknown indication
     Route: 042
  335. APREPITANT [Concomitant]
     Active Substance: APREPITANT
  336. APREPITANT [Concomitant]
     Active Substance: APREPITANT
  337. APREPITANT [Concomitant]
     Active Substance: APREPITANT
  338. APREPITANT [Concomitant]
     Active Substance: APREPITANT
     Route: 042
  339. APREPITANT [Concomitant]
     Active Substance: APREPITANT
     Route: 048
  340. APREPITANT [Concomitant]
     Active Substance: APREPITANT
     Route: 048
  341. APREPITANT [Concomitant]
     Active Substance: APREPITANT
  342. ALENDRONATE SODIUM [Concomitant]
     Active Substance: ALENDRONATE SODIUM
     Indication: Rheumatoid arthritis
     Route: 048
  343. ALENDRONIC ACID [Concomitant]
     Active Substance: ALENDRONIC ACID
     Indication: Rheumatoid arthritis
     Route: 016
  344. ALENDRONIC ACID [Concomitant]
     Active Substance: ALENDRONIC ACID
     Route: 048
  345. ALENDRONIC ACID [Concomitant]
     Active Substance: ALENDRONIC ACID
  346. COSENTYX [Concomitant]
     Active Substance: SECUKINUMAB
     Indication: Rheumatoid arthritis
  347. COSENTYX [Concomitant]
     Active Substance: SECUKINUMAB
     Indication: Psoriatic arthropathy
     Route: 005
  348. DICLOFENAC DIETHYLAMINE [Concomitant]
     Active Substance: DICLOFENAC DIETHYLAMINE
     Indication: Product used for unknown indication
  349. DICLOFENAC POTASSIUM [Concomitant]
     Active Substance: DICLOFENAC POTASSIUM
     Indication: Product used for unknown indication
  350. DICLOFENAC POTASSIUM [Concomitant]
     Active Substance: DICLOFENAC POTASSIUM
     Route: 048
  351. DICLOFENAC POTASSIUM [Concomitant]
     Active Substance: DICLOFENAC POTASSIUM
  352. DICLOFENAC POTASSIUM [Concomitant]
     Active Substance: DICLOFENAC POTASSIUM
     Route: 048
  353. DICLOFENAC POTASSIUM [Concomitant]
     Active Substance: DICLOFENAC POTASSIUM
     Route: 050
  354. DICLOFENAC SODIUM [Concomitant]
     Active Substance: DICLOFENAC SODIUM
     Indication: Rheumatoid arthritis
     Route: 048
  355. DICLOFENAC SODIUM [Concomitant]
     Active Substance: DICLOFENAC SODIUM
     Route: 047
  356. DICLOFENAC SODIUM [Concomitant]
     Active Substance: DICLOFENAC SODIUM
  357. DICLOFENAC SODIUM [Concomitant]
     Active Substance: DICLOFENAC SODIUM
  358. DICLOFENAC SODIUM [Concomitant]
     Active Substance: DICLOFENAC SODIUM
     Route: 058
  359. DICLOFENAC SODIUM [Concomitant]
     Active Substance: DICLOFENAC SODIUM
  360. DICLOFENAC SODIUM [Concomitant]
     Active Substance: DICLOFENAC SODIUM
  361. ERELZI [Concomitant]
     Active Substance: ETANERCEPT-SZZS
     Indication: Rheumatoid arthritis
     Route: 058
  362. ERELZI [Concomitant]
     Active Substance: ETANERCEPT-SZZS
     Route: 058
  363. ERELZI [Concomitant]
     Active Substance: ETANERCEPT-SZZS
  364. ERELZI [Concomitant]
     Active Substance: ETANERCEPT-SZZS
     Route: 058
  365. MYCOPHENOLATE MOFETIL [Concomitant]
     Active Substance: MYCOPHENOLATE MOFETIL
     Indication: Product used for unknown indication
  366. PANTOPRAZOLE [Concomitant]
     Active Substance: PANTOPRAZOLE
     Indication: Product used for unknown indication
  367. PANTOPRAZOLE [Concomitant]
     Active Substance: PANTOPRAZOLE
     Route: 016
  368. ACETAMINOPHEN AND CODEINE [Concomitant]
     Active Substance: ACETAMINOPHEN\CODEINE PHOSPHATE
     Indication: Product used for unknown indication
     Dosage: ELIXIR
  369. ACETAMINOPHEN AND CODEINE [Concomitant]
     Active Substance: ACETAMINOPHEN\CODEINE PHOSPHATE
     Dosage: ELIXIR
  370. DICLOFENAC POTASSIUM [Concomitant]
     Active Substance: DICLOFENAC POTASSIUM
     Indication: Product used for unknown indication
     Route: 047
  371. DICLOFENAC POTASSIUM [Concomitant]
     Active Substance: DICLOFENAC POTASSIUM
     Route: 048
  372. DICLOFENAC POTASSIUM [Concomitant]
     Active Substance: DICLOFENAC POTASSIUM
  373. DICLOFENAC POTASSIUM [Concomitant]
     Active Substance: DICLOFENAC POTASSIUM
  374. PREDNISONE [Concomitant]
     Active Substance: PREDNISONE
     Indication: Systemic lupus erythematosus
     Route: 048
  375. PREDNISONE [Concomitant]
     Active Substance: PREDNISONE
     Indication: Rheumatoid arthritis
  376. PREDNISONE [Concomitant]
     Active Substance: PREDNISONE
     Indication: Psoriatic arthropathy
     Route: 048
  377. PREDNISONE [Concomitant]
     Active Substance: PREDNISONE
     Indication: Pemphigus
     Route: 048
  378. PREDNISONE [Concomitant]
     Active Substance: PREDNISONE
     Indication: Inflammation
     Route: 048
  379. PREDNISONE [Concomitant]
     Active Substance: PREDNISONE
     Indication: Bursitis
     Route: 048
  380. PREDNISONE [Concomitant]
     Active Substance: PREDNISONE
     Indication: Synovitis
     Route: 048
  381. PREDNISONE [Concomitant]
     Active Substance: PREDNISONE
     Route: 048
  382. APREMILAST [Concomitant]
     Active Substance: APREMILAST
     Indication: Product used for unknown indication
  383. APREMILAST [Concomitant]
     Active Substance: APREMILAST
  384. ASACOL [Concomitant]
     Active Substance: MESALAMINE
     Indication: Product used for unknown indication
  385. CALCIUM [Concomitant]
     Active Substance: CALCIUM
     Indication: Product used for unknown indication
  386. CALCIUM GLUBIONATE [Concomitant]
     Active Substance: CALCIUM GLUBIONATE
     Indication: Product used for unknown indication
     Route: 016
  387. CALCIUM GLUBIONATE [Concomitant]
     Active Substance: CALCIUM GLUBIONATE
  388. CELEBREX [Concomitant]
     Active Substance: CELECOXIB
     Indication: Rheumatoid arthritis
     Route: 048
  389. CELEBREX [Concomitant]
     Active Substance: CELECOXIB
     Route: 048
  390. CELEBREX [Concomitant]
     Active Substance: CELECOXIB
     Route: 048
  391. CELECOXIB [Concomitant]
     Active Substance: CELECOXIB
     Indication: Product used for unknown indication
  392. CELECOXIB [Concomitant]
     Active Substance: CELECOXIB
  393. CELECOXIB [Concomitant]
     Active Substance: CELECOXIB
  394. CELECOXIB [Concomitant]
     Active Substance: CELECOXIB
  395. CERTOLIZUMAB PEGOL [Concomitant]
     Active Substance: CERTOLIZUMAB PEGOL
     Indication: Product used for unknown indication
  396. CHLORAPREP [Concomitant]
     Active Substance: CHLORHEXIDINE GLUCONATE\ISOPROPYL ALCOHOL
     Indication: Product used for unknown indication
     Route: 061
  397. CHLORAPREP [Concomitant]
     Active Substance: CHLORHEXIDINE GLUCONATE\ISOPROPYL ALCOHOL
     Route: 061
  398. CHLORAPREP [Concomitant]
     Active Substance: CHLORHEXIDINE GLUCONATE\ISOPROPYL ALCOHOL
     Route: 061
  399. CHLORAPREP [Concomitant]
     Active Substance: CHLORHEXIDINE GLUCONATE\ISOPROPYL ALCOHOL
  400. CHLORAPREP [Concomitant]
     Active Substance: CHLORHEXIDINE GLUCONATE\ISOPROPYL ALCOHOL
     Route: 061
  401. CHLORAPREP [Concomitant]
     Active Substance: CHLORHEXIDINE GLUCONATE\ISOPROPYL ALCOHOL
     Route: 048
  402. CHLORAPREP [Concomitant]
     Active Substance: CHLORHEXIDINE GLUCONATE\ISOPROPYL ALCOHOL
     Route: 048
  403. CHLORAPREP [Concomitant]
     Active Substance: CHLORHEXIDINE GLUCONATE\ISOPROPYL ALCOHOL
     Route: 061
  404. CHOLECALCIFEROL [Concomitant]
     Active Substance: CHOLECALCIFEROL
     Indication: Rheumatoid arthritis
     Route: 016
  405. CHOLECALCIFEROL [Concomitant]
     Active Substance: CHOLECALCIFEROL
  406. CORTISONE ACETATE [Concomitant]
     Active Substance: CORTISONE ACETATE
     Indication: Rheumatoid arthritis
     Route: 048
  407. CORTISONE ACETATE [Concomitant]
     Active Substance: CORTISONE ACETATE
     Route: 050
  408. CORTISONE ACETATE [Concomitant]
     Active Substance: CORTISONE ACETATE
     Route: 061
  409. CORTISONE ACETATE [Concomitant]
     Active Substance: CORTISONE ACETATE
  410. CORTISONE ACETATE [Concomitant]
     Active Substance: CORTISONE ACETATE
  411. CORTISONE ACETATE [Concomitant]
     Active Substance: CORTISONE ACETATE
     Route: 061
  412. CORTISONE ACETATE [Concomitant]
     Active Substance: CORTISONE ACETATE
     Route: 061
  413. DILTIAZEM HYDROCHLORIDE [Concomitant]
     Active Substance: DILTIAZEM HYDROCHLORIDE
     Indication: Product used for unknown indication
  414. DILTIAZEM HYDROCHLORIDE [Concomitant]
     Active Substance: DILTIAZEM HYDROCHLORIDE
     Route: 042
  415. DILTIAZEM HYDROCHLORIDE [Concomitant]
     Active Substance: DILTIAZEM HYDROCHLORIDE
     Indication: Product used for unknown indication
     Route: 042
  416. DILTIAZEM HYDROCHLORIDE [Concomitant]
     Active Substance: DILTIAZEM HYDROCHLORIDE
  417. DOXYCYCLINE [Concomitant]
     Active Substance: DOXYCYCLINE
     Indication: Product used for unknown indication
  418. ENTYVIO [Concomitant]
     Active Substance: VEDOLIZUMAB
     Indication: Product used for unknown indication
  419. FLUMETHASONE PIVALATE [Concomitant]
     Active Substance: FLUMETHASONE PIVALATE
     Indication: Rheumatoid arthritis
  420. FLUMETHASONE PIVALATE [Concomitant]
     Active Substance: FLUMETHASONE PIVALATE
     Route: 058
  421. FLUMETHASONE PIVALATE [Concomitant]
     Active Substance: FLUMETHASONE PIVALATE
     Route: 058
  422. FLUMETHASONE PIVALATE [Concomitant]
     Active Substance: FLUMETHASONE PIVALATE
     Route: 003
  423. FLUMETHASONE PIVALATE [Concomitant]
     Active Substance: FLUMETHASONE PIVALATE
  424. FLUMETHASONE PIVALATE [Concomitant]
     Active Substance: FLUMETHASONE PIVALATE
     Route: 048
  425. GOLIMUMAB [Concomitant]
     Active Substance: GOLIMUMAB
     Indication: Rheumatoid arthritis
     Route: 058
  426. HYDROCORTISONE PROBUTATE [Concomitant]
     Active Substance: HYDROCORTISONE PROBUTATE
     Indication: Rheumatoid arthritis
     Route: 048
  427. HYDROCORTISONE PROBUTATE [Concomitant]
     Active Substance: HYDROCORTISONE PROBUTATE
     Route: 050
  428. HYDROCORTISONE PROBUTATE [Concomitant]
     Active Substance: HYDROCORTISONE PROBUTATE
     Route: 058
  429. HYDROXYCHLOROQUINE SULFATE [Concomitant]
     Active Substance: HYDROXYCHLOROQUINE SULFATE
     Indication: Systemic lupus erythematosus
     Route: 066
  430. HYDROXYCHLOROQUINE SULFATE [Concomitant]
     Active Substance: HYDROXYCHLOROQUINE SULFATE
     Indication: Rheumatoid arthritis
     Route: 048
  431. HYDROXYCHLOROQUINE SULFATE [Concomitant]
     Active Substance: HYDROXYCHLOROQUINE SULFATE
     Route: 048
  432. HYDROXYCHLOROQUINE SULFATE [Concomitant]
     Active Substance: HYDROXYCHLOROQUINE SULFATE
  433. HYDROXYCHLOROQUINE SULFATE [Concomitant]
     Active Substance: HYDROXYCHLOROQUINE SULFATE
     Route: 058
  434. HYDROXYCHLOROQUINE SULFATE [Concomitant]
     Active Substance: HYDROXYCHLOROQUINE SULFATE
  435. HYDROXYCHLOROQUINE SULFATE [Concomitant]
     Active Substance: HYDROXYCHLOROQUINE SULFATE
     Route: 016
  436. HYDROXYCHLOROQUINE SULFATE [Concomitant]
     Active Substance: HYDROXYCHLOROQUINE SULFATE
     Route: 048
  437. HYDROXYCHLOROQUINE SULFATE [Concomitant]
     Active Substance: HYDROXYCHLOROQUINE SULFATE
     Route: 058
  438. HYDROXYCHLOROQUINE SULFATE [Concomitant]
     Active Substance: HYDROXYCHLOROQUINE SULFATE
  439. HYDROXYCHLOROQUINE SULFATE [Concomitant]
     Active Substance: HYDROXYCHLOROQUINE SULFATE
     Route: 048
  440. HYDROXYCHLOROQUINE SULFATE [Concomitant]
     Active Substance: HYDROXYCHLOROQUINE SULFATE
  441. HYDROXYCHLOROQUINE SULFATE [Concomitant]
     Active Substance: HYDROXYCHLOROQUINE SULFATE
     Route: 048
  442. IBUPROFEN [Concomitant]
     Active Substance: IBUPROFEN
     Indication: Product used for unknown indication
  443. KEVZARA [Concomitant]
     Active Substance: SARILUMAB
     Indication: Product used for unknown indication
  444. LISINOPRIL [Concomitant]
     Active Substance: LISINOPRIL
     Indication: Product used for unknown indication
  445. LYRICA [Concomitant]
     Active Substance: PREGABALIN
     Indication: Product used for unknown indication
  446. MOXIFLOXACIN [Concomitant]
     Active Substance: MOXIFLOXACIN
     Indication: Product used for unknown indication
     Route: 058
  447. NAPROXEN SODIUM [Concomitant]
     Active Substance: NAPROXEN SODIUM
     Indication: Rheumatoid arthritis
  448. NAPROXEN SODIUM [Concomitant]
     Active Substance: NAPROXEN SODIUM
  449. NEOMYCIN [Concomitant]
     Active Substance: NEOMYCIN
     Indication: Product used for unknown indication
  450. PHTHALYLSULFATHIAZOLE [Concomitant]
     Active Substance: PHTHALYLSULFATHIAZOLE
     Indication: Rheumatoid arthritis
     Dosage: 365 DAYS
     Route: 048
  451. PHTHALYLSULFATHIAZOLE [Concomitant]
     Active Substance: PHTHALYLSULFATHIAZOLE
     Route: 048
  452. PHTHALYLSULFATHIAZOLE [Concomitant]
     Active Substance: PHTHALYLSULFATHIAZOLE
     Route: 048
  453. PHTHALYLSULFATHIAZOLE [Concomitant]
     Active Substance: PHTHALYLSULFATHIAZOLE
     Route: 058
  454. PHTHALYLSULFATHIAZOLE [Concomitant]
     Active Substance: PHTHALYLSULFATHIAZOLE
     Dosage: 365 DAYS
     Route: 048
  455. PHTHALYLSULFATHIAZOLE [Concomitant]
     Active Substance: PHTHALYLSULFATHIAZOLE
     Route: 048
  456. PHTHALYLSULFATHIAZOLE [Concomitant]
     Active Substance: PHTHALYLSULFATHIAZOLE
  457. PHTHALYLSULFATHIAZOLE [Concomitant]
     Active Substance: PHTHALYLSULFATHIAZOLE
     Route: 016
  458. PHTHALYLSULFATHIAZOLE [Concomitant]
     Active Substance: PHTHALYLSULFATHIAZOLE
     Route: 048
  459. PHTHALYLSULFATHIAZOLE [Concomitant]
     Active Substance: PHTHALYLSULFATHIAZOLE
     Route: 042
  460. PHTHALYLSULFATHIAZOLE [Concomitant]
     Active Substance: PHTHALYLSULFATHIAZOLE
  461. PREDNISOLONE [Concomitant]
     Active Substance: PREDNISOLONE
     Indication: Product used for unknown indication
  462. PREGABALIN [Concomitant]
     Active Substance: PREGABALIN
     Indication: Product used for unknown indication
  463. PSEUDOEPHEDRINE HYDROCHLORIDE [Concomitant]
     Active Substance: PSEUDOEPHEDRINE HYDROCHLORIDE
     Indication: Rheumatoid arthritis
  464. PSEUDOEPHEDRINE HYDROCHLORIDE [Concomitant]
     Active Substance: PSEUDOEPHEDRINE HYDROCHLORIDE
  465. PSEUDOEPHEDRINE HYDROCHLORIDE [Concomitant]
     Active Substance: PSEUDOEPHEDRINE HYDROCHLORIDE
  466. RAMIPRIL [Concomitant]
     Active Substance: RAMIPRIL
     Indication: Rheumatoid arthritis
     Route: 042
  467. RAMIPRIL [Concomitant]
     Active Substance: RAMIPRIL
  468. CETIRIZINE HYDROCHLORIDE [Concomitant]
     Active Substance: CETIRIZINE HYDROCHLORIDE
     Indication: Urticaria
  469. CETIRIZINE HYDROCHLORIDE [Concomitant]
     Active Substance: CETIRIZINE HYDROCHLORIDE
     Indication: Rheumatoid arthritis
     Route: 048
  470. CETIRIZINE HYDROCHLORIDE [Concomitant]
     Active Substance: CETIRIZINE HYDROCHLORIDE
     Route: 016
  471. CETIRIZINE HYDROCHLORIDE [Concomitant]
     Active Substance: CETIRIZINE HYDROCHLORIDE
  472. CETIRIZINE HYDROCHLORIDE [Concomitant]
     Active Substance: CETIRIZINE HYDROCHLORIDE
     Route: 005
  473. VITAMIN C [Concomitant]
     Active Substance: ASCORBIC ACID
     Indication: Product used for unknown indication
  474. VITAMIN C [Concomitant]
     Active Substance: ASCORBIC ACID
     Route: 016
  475. PREDNISONE [Concomitant]
     Active Substance: PREDNISONE
     Indication: Rheumatoid arthritis
     Route: 048
  476. CHLORHEXIDINE GLUCONATE\ISOPROPYL ALCOHOL [Concomitant]
     Active Substance: CHLORHEXIDINE GLUCONATE\ISOPROPYL ALCOHOL
     Indication: Product used for unknown indication
     Route: 061
  477. CHLORHEXIDINE GLUCONATE\ISOPROPYL ALCOHOL [Concomitant]
     Active Substance: CHLORHEXIDINE GLUCONATE\ISOPROPYL ALCOHOL
     Route: 002
  478. CHLORHEXIDINE GLUCONATE\ISOPROPYL ALCOHOL [Concomitant]
     Active Substance: CHLORHEXIDINE GLUCONATE\ISOPROPYL ALCOHOL
     Route: 048
  479. DESOGESTREL\ETHINYL ESTRADIOL [Concomitant]
     Active Substance: DESOGESTREL\ETHINYL ESTRADIOL
     Indication: Product used for unknown indication
  480. MARVELON [Concomitant]
     Active Substance: DESOGESTREL\ETHINYL ESTRADIOL
     Indication: Product used for unknown indication
  481. HYDROXYCHLOROQUINE DIPHOSPHATE [Concomitant]
     Active Substance: HYDROXYCHLOROQUINE DIPHOSPHATE
     Indication: Product used for unknown indication
  482. SULFASALAZINE [Concomitant]
     Active Substance: SULFASALAZINE
     Indication: Rheumatoid arthritis
  483. STELARA [Concomitant]
     Active Substance: USTEKINUMAB
     Indication: Product used for unknown indication
     Route: 058
  484. STELARA [Concomitant]
     Active Substance: USTEKINUMAB
     Dosage: SOLUTION SUBCUTANEOUS
     Route: 058
  485. ZOPICLONE [Concomitant]
     Active Substance: ZOPICLONE
     Indication: Product used for unknown indication
  486. ZOPICLONE [Concomitant]
     Active Substance: ZOPICLONE
  487. OTEZLA [Concomitant]
     Active Substance: APREMILAST
     Indication: Product used for unknown indication
  488. OTEZLA [Concomitant]
     Active Substance: APREMILAST
     Route: 042
  489. OTEZLA [Concomitant]
     Active Substance: APREMILAST
     Route: 048
  490. OTEZLA [Concomitant]
     Active Substance: APREMILAST
  491. TRAMADOL HYDROCHLORIDE [Concomitant]
     Active Substance: TRAMADOL HYDROCHLORIDE
     Indication: Product used for unknown indication
  492. LORAZEPAM [Concomitant]
     Active Substance: LORAZEPAM
     Indication: Product used for unknown indication
  493. FISH OIL [Concomitant]
     Active Substance: FISH OIL
     Indication: Product used for unknown indication
  494. FLUMETHASONE PIVALATE [Concomitant]
     Active Substance: FLUMETHASONE PIVALATE
     Indication: Rheumatoid arthritis
     Route: 058
  495. TYLENOL WITH CODEINE [Concomitant]
     Active Substance: ACETAMINOPHEN\CODEINE PHOSPHATE
     Indication: Product used for unknown indication
  496. DICLOFENAC [Concomitant]
     Active Substance: DICLOFENAC
     Indication: Product used for unknown indication
  497. ERYTHROMYCIN [Concomitant]
     Active Substance: ERYTHROMYCIN
     Indication: Product used for unknown indication
  498. ACETAMINOPHEN AND CODEINE [Concomitant]
     Active Substance: ACETAMINOPHEN\CODEINE PHOSPHATE
     Indication: Rheumatoid arthritis
  499. AIMOVIG [Concomitant]
     Active Substance: ERENUMAB-AOOE
     Indication: Rheumatoid arthritis
  500. AZATHIOPRINE [Concomitant]
     Active Substance: AZATHIOPRINE
     Indication: Product used for unknown indication
  501. BERINERT [Concomitant]
     Active Substance: HUMAN C1-ESTERASE INHIBITOR
     Indication: Product used for unknown indication
  502. BETAMETHASONE [Concomitant]
     Active Substance: BETAMETHASONE
     Indication: Product used for unknown indication
  503. BOTULINUM TOXIN TYPE A [Concomitant]
     Active Substance: BOTULINUM TOXIN TYPE A
     Indication: Product used for unknown indication
     Dosage: POWDER FOR SOLUTION
     Route: 030
  504. BOTULINUM TOXIN TYPE A [Concomitant]
     Active Substance: BOTULINUM TOXIN TYPE A
  505. BUPRENORPHINE [Concomitant]
     Active Substance: BUPRENORPHINE
     Indication: Product used for unknown indication
  506. CANDESARTAN [Concomitant]
     Active Substance: CANDESARTAN
     Indication: Migraine
     Route: 048
  507. CANDESARTAN [Concomitant]
     Active Substance: CANDESARTAN
     Indication: Rheumatoid arthritis
  508. CETIRIZINE [Concomitant]
     Active Substance: CETIRIZINE HYDROCHLORIDE
     Indication: Rheumatoid arthritis
     Route: 048
  509. CETIRIZINE [Concomitant]
     Active Substance: CETIRIZINE HYDROCHLORIDE
     Route: 048
  510. CETIRIZINE [Concomitant]
     Active Substance: CETIRIZINE HYDROCHLORIDE
  511. CETIRIZINE [Concomitant]
     Active Substance: CETIRIZINE HYDROCHLORIDE
  512. CYCLOBENZAPRINE [Concomitant]
     Active Substance: CYCLOBENZAPRINE
     Indication: Product used for unknown indication
  513. DESOXIMETASONE [Concomitant]
     Active Substance: DESOXIMETASONE
     Indication: Rheumatoid arthritis
     Route: 048
  514. DICLOFENAC DIETHYLAMINE [Concomitant]
     Active Substance: DICLOFENAC DIETHYLAMINE
     Indication: Product used for unknown indication
  515. DOMPERIDONE [Concomitant]
     Active Substance: DOMPERIDONE
     Indication: Product used for unknown indication
  516. ERGOCALCIFEROL [Concomitant]
     Active Substance: ERGOCALCIFEROL
     Indication: Product used for unknown indication
  517. FINACEA [Concomitant]
     Active Substance: AZELAIC ACID
     Indication: Product used for unknown indication
  518. FLUTICASONE PROPIONATE [Concomitant]
     Active Substance: FLUTICASONE PROPIONATE
     Indication: Product used for unknown indication
  519. GOLD SODIUM THIOMALATE [Concomitant]
     Active Substance: GOLD SODIUM THIOMALATE
     Indication: Product used for unknown indication
  520. HYDROMORPHONE [Concomitant]
     Active Substance: HYDROMORPHONE
     Indication: Rheumatoid arthritis
  521. LAMOTRIGINE [Concomitant]
     Active Substance: LAMOTRIGINE
     Indication: Product used for unknown indication
     Route: 048
  522. LAMOTRIGINE [Concomitant]
     Active Substance: LAMOTRIGINE
     Route: 048
  523. LAMOTRIGINE [Concomitant]
     Active Substance: LAMOTRIGINE
     Route: 048
  524. LAMOTRIGINE [Concomitant]
     Active Substance: LAMOTRIGINE
     Route: 048
  525. LEVOMILNACIPRAN [Concomitant]
     Active Substance: LEVOMILNACIPRAN
     Indication: Product used for unknown indication
  526. MAGNESIUM [Concomitant]
     Active Substance: MAGNESIUM
     Indication: Product used for unknown indication
  527. METHYLPREDNISOLONE [Concomitant]
     Active Substance: METHYLPREDNISOLONE
     Indication: Product used for unknown indication
  528. MINOCYCLINE [Concomitant]
     Active Substance: MINOCYCLINE HYDROCHLORIDE
     Indication: Product used for unknown indication
  529. MYRBETRIQ [Concomitant]
     Active Substance: MIRABEGRON
     Indication: Product used for unknown indication
     Dosage: TABLET (EXTENDED- RELEASE)
  530. NUCALA [Concomitant]
     Active Substance: MEPOLIZUMAB
     Indication: Product used for unknown indication
  531. PSEUDOEPHEDRINE HYDROCHLORIDE [Concomitant]
     Active Substance: PSEUDOEPHEDRINE HYDROCHLORIDE
     Indication: Rheumatoid arthritis
  532. PSEUDOEPHEDRINE HYDROCHLORIDE [Concomitant]
     Active Substance: PSEUDOEPHEDRINE HYDROCHLORIDE
  533. PSEUDOEPHEDRINE HYDROCHLORIDE [Concomitant]
     Active Substance: PSEUDOEPHEDRINE HYDROCHLORIDE
  534. TOPIRAMATE [Concomitant]
     Active Substance: TOPIRAMATE
     Indication: Migraine
  535. TOPIRAMATE [Concomitant]
     Active Substance: TOPIRAMATE
  536. TOPIRAMATE [Concomitant]
     Active Substance: TOPIRAMATE
  537. TRAZODONE [Concomitant]
     Active Substance: TRAZODONE HYDROCHLORIDE
     Indication: Product used for unknown indication
  538. TRETINOIN [Concomitant]
     Active Substance: TRETINOIN
     Indication: Product used for unknown indication
  539. SULFATRIM [Concomitant]
     Active Substance: SULFAMETHOXAZOLE\TRIMETHOPRIM
     Indication: Product used for unknown indication
  540. TRAMADOL [Concomitant]
     Active Substance: TRAMADOL
     Indication: Product used for unknown indication

REACTIONS (1)
  - Death [Fatal]
